FAERS Safety Report 9997338 (Version 1)
Quarter: 2014Q1

REPORT INFORMATION
  Report Type: Spontaneous
  Country: US (occurrence: US)
  Receive Date: 20140311
  Receipt Date: 20140311
  Transmission Date: 20141002
  Serious: No
  Sender: FDA-Public Use
  Company Number: US-GLAXOSMITHKLINE-A1036422A

PATIENT
  Sex: Female

DRUGS (1)
  1. NICOTINE GUM UNKNOWN STRENGTH UNKNOWN BRAND [Suspect]
     Indication: EX-TOBACCO USER
     Dates: start: 2013

REACTIONS (2)
  - Oral discomfort [Recovered/Resolved]
  - Paraesthesia oral [Recovered/Resolved]
